FAERS Safety Report 12924387 (Version 27)
Quarter: 2020Q4

REPORT INFORMATION
  Report Type: Spontaneous
  Country: CA (occurrence: CA)
  Receive Date: 20161108
  Receipt Date: 20201103
  Transmission Date: 20210113
  Serious: Yes (Life-Threatening, Other)
  Sender: FDA-Public Use
  Company Number: CA-JNJFOC-20161101768

PATIENT
  Age: 45 Year
  Sex: Female

DRUGS (241)
  1. ENBREL [Suspect]
     Active Substance: ETANERCEPT
     Route: 058
  2. ENBREL [Suspect]
     Active Substance: ETANERCEPT
     Route: 058
  3. ENBREL [Suspect]
     Active Substance: ETANERCEPT
     Route: 058
  4. DACLIZUMAB [Suspect]
     Active Substance: DACLIZUMAB
     Dosage: 5 MG/ML
     Route: 042
  5. ANTITHYMOCYTE IMMUNOGLOBULIN (RABBIT) [Suspect]
     Active Substance: LAPINE T-LYMPHOCYTE IMMUNE GLOBULIN
     Route: 005
  6. TACROLIMUS. [Suspect]
     Active Substance: TACROLIMUS
     Route: 048
  7. TACROLIMUS. [Suspect]
     Active Substance: TACROLIMUS
     Route: 048
  8. TACROLIMUS. [Suspect]
     Active Substance: TACROLIMUS
     Route: 048
  9. TACROLIMUS. [Suspect]
     Active Substance: TACROLIMUS
     Route: 065
  10. PROGRAF [Suspect]
     Active Substance: TACROLIMUS
     Indication: TRANSPLANT
     Route: 048
  11. PROGRAF [Suspect]
     Active Substance: TACROLIMUS
     Route: 048
  12. PROGRAF [Suspect]
     Active Substance: TACROLIMUS
     Route: 048
  13. PROGRAF [Suspect]
     Active Substance: TACROLIMUS
     Route: 048
  14. PROGRAF [Suspect]
     Active Substance: TACROLIMUS
     Route: 048
  15. PROGRAF [Suspect]
     Active Substance: TACROLIMUS
     Route: 048
  16. PROGRAF [Suspect]
     Active Substance: TACROLIMUS
     Route: 048
  17. PROGRAF [Suspect]
     Active Substance: TACROLIMUS
     Route: 065
  18. PROGRAF [Suspect]
     Active Substance: TACROLIMUS
     Route: 048
  19. PROGRAF [Suspect]
     Active Substance: TACROLIMUS
     Route: 048
  20. ENBREL [Suspect]
     Active Substance: ETANERCEPT
     Route: 058
  21. ENBREL [Suspect]
     Active Substance: ETANERCEPT
     Route: 058
  22. TACROLIMUS. [Suspect]
     Active Substance: TACROLIMUS
     Route: 065
  23. MYCOPHENOLATE [Suspect]
     Active Substance: MYCOPHENOLIC ACID
     Indication: TRANSPLANT
     Route: 048
  24. MYCOPHENOLATE [Suspect]
     Active Substance: MYCOPHENOLIC ACID
     Route: 048
  25. MYCOPHENOLATE [Suspect]
     Active Substance: MYCOPHENOLIC ACID
     Route: 048
  26. DACLIZUMAB [Suspect]
     Active Substance: DACLIZUMAB
     Route: 042
  27. PROGRAF [Suspect]
     Active Substance: TACROLIMUS
  28. MYCOPHENOLATE MOFETIL. [Suspect]
     Active Substance: MYCOPHENOLATE MOFETIL
     Route: 048
  29. METHOTREXATE. [Suspect]
     Active Substance: METHOTREXATE
     Indication: PRODUCT USED FOR UNKNOWN INDICATION
     Route: 065
  30. CELLCEPT [Suspect]
     Active Substance: MYCOPHENOLATE MOFETIL\MYCOPHENOLATE MOFETIL HYDROCHLORIDE
     Route: 048
  31. CELLCEPT [Suspect]
     Active Substance: MYCOPHENOLATE MOFETIL\MYCOPHENOLATE MOFETIL HYDROCHLORIDE
     Route: 048
  32. RAPAMUNE [Suspect]
     Active Substance: SIROLIMUS
     Route: 065
  33. NEORAL [Suspect]
     Active Substance: CYCLOSPORINE
     Indication: TRANSPLANT
     Route: 065
  34. ENBREL [Suspect]
     Active Substance: ETANERCEPT
     Indication: PRODUCT USED FOR UNKNOWN INDICATION
     Route: 058
  35. ENBREL [Suspect]
     Active Substance: ETANERCEPT
     Route: 058
  36. DACLIZUMAB [Suspect]
     Active Substance: DACLIZUMAB
     Route: 042
  37. TACROLIMUS. [Suspect]
     Active Substance: TACROLIMUS
     Route: 048
  38. PROGRAF [Suspect]
     Active Substance: TACROLIMUS
     Route: 048
  39. PROGRAF [Suspect]
     Active Substance: TACROLIMUS
     Route: 048
  40. PROGRAF [Suspect]
     Active Substance: TACROLIMUS
     Route: 048
  41. PROGRAF [Suspect]
     Active Substance: TACROLIMUS
     Route: 048
  42. PROGRAF [Suspect]
     Active Substance: TACROLIMUS
     Indication: TRANSPLANT
     Route: 048
  43. PROGRAF [Suspect]
     Active Substance: TACROLIMUS
     Route: 048
  44. PROGRAF [Suspect]
     Active Substance: TACROLIMUS
     Route: 048
  45. ZENAPAX [Suspect]
     Active Substance: DACLIZUMAB
     Route: 042
  46. ZENAPAX [Suspect]
     Active Substance: DACLIZUMAB
     Route: 042
  47. ZENAPAX [Suspect]
     Active Substance: DACLIZUMAB
     Route: 042
  48. ZENAPAX [Suspect]
     Active Substance: DACLIZUMAB
     Route: 042
  49. ENBREL [Suspect]
     Active Substance: ETANERCEPT
     Route: 048
  50. MYCOPHENOLATE MOFETIL. [Suspect]
     Active Substance: MYCOPHENOLATE MOFETIL
     Indication: TRANSPLANT
     Route: 048
  51. MYCOPHENOLATE MOFETIL. [Suspect]
     Active Substance: MYCOPHENOLATE MOFETIL
     Indication: TRANSPLANT
     Route: 065
  52. MYCOPHENOLATE MOFETIL. [Suspect]
     Active Substance: MYCOPHENOLATE MOFETIL
     Route: 048
  53. MYCOPHENOLATE MOFETIL. [Suspect]
     Active Substance: MYCOPHENOLATE MOFETIL
     Route: 048
  54. MYCOPHENOLATE MOFETIL. [Suspect]
     Active Substance: MYCOPHENOLATE MOFETIL
     Indication: TRANSPLANT
     Route: 048
  55. ORENCIA [Suspect]
     Active Substance: ABATACEPT
     Indication: PRODUCT USED FOR UNKNOWN INDICATION
     Route: 065
  56. ENBREL [Suspect]
     Active Substance: ETANERCEPT
     Route: 058
  57. ENBREL [Suspect]
     Active Substance: ETANERCEPT
     Route: 058
  58. ENBREL [Suspect]
     Active Substance: ETANERCEPT
     Route: 058
  59. DACLIZUMAB [Suspect]
     Active Substance: DACLIZUMAB
     Indication: TRANSPLANT
     Route: 042
  60. DACLIZUMAB [Suspect]
     Active Substance: DACLIZUMAB
     Route: 042
  61. DACLIZUMAB [Suspect]
     Active Substance: DACLIZUMAB
     Route: 042
  62. ANTITHYMOCYTE IMMUNOGLOBULIN (RABBIT) [Suspect]
     Active Substance: LAPINE T-LYMPHOCYTE IMMUNE GLOBULIN
     Indication: TRANSPLANT
     Route: 005
  63. ANTITHYMOCYTE IMMUNOGLOBULIN (RABBIT) [Suspect]
     Active Substance: LAPINE T-LYMPHOCYTE IMMUNE GLOBULIN
     Route: 005
  64. TACROLIMUS. [Suspect]
     Active Substance: TACROLIMUS
     Indication: TRANSPLANT
     Route: 048
  65. TACROLIMUS. [Suspect]
     Active Substance: TACROLIMUS
     Route: 048
  66. TACROLIMUS. [Suspect]
     Active Substance: TACROLIMUS
     Route: 048
  67. PROGRAF [Suspect]
     Active Substance: TACROLIMUS
     Route: 048
  68. PROGRAF [Suspect]
     Active Substance: TACROLIMUS
     Route: 048
  69. PROGRAF [Suspect]
     Active Substance: TACROLIMUS
     Route: 048
  70. PROGRAF [Suspect]
     Active Substance: TACROLIMUS
     Route: 048
  71. PROGRAF [Suspect]
     Active Substance: TACROLIMUS
     Route: 048
  72. PROGRAF [Suspect]
     Active Substance: TACROLIMUS
     Route: 048
  73. PROGRAF [Suspect]
     Active Substance: TACROLIMUS
     Route: 048
  74. PROGRAF [Suspect]
     Active Substance: TACROLIMUS
     Route: 048
  75. PROGRAF [Suspect]
     Active Substance: TACROLIMUS
     Route: 048
  76. PROGRAF [Suspect]
     Active Substance: TACROLIMUS
     Route: 048
  77. PROGRAF [Suspect]
     Active Substance: TACROLIMUS
     Route: 048
  78. PROGRAF [Suspect]
     Active Substance: TACROLIMUS
     Route: 048
  79. PROGRAF [Suspect]
     Active Substance: TACROLIMUS
     Route: 048
  80. TACROLIMUS. [Suspect]
     Active Substance: TACROLIMUS
     Route: 065
  81. TACROLIMUS. [Suspect]
     Active Substance: TACROLIMUS
     Route: 048
  82. ANTITHYMOCYTE IMMUNOGLOBULIN [Suspect]
     Active Substance: THYMOCYTE IMMUNE GLOBULIN NOS
     Route: 065
  83. MYCOPHENOLATE [Suspect]
     Active Substance: MYCOPHENOLIC ACID
     Route: 065
  84. ENBREL [Suspect]
     Active Substance: ETANERCEPT
     Route: 048
  85. ENBREL [Suspect]
     Active Substance: ETANERCEPT
     Route: 048
  86. ENBREL [Suspect]
     Active Substance: ETANERCEPT
     Route: 048
  87. DACLIZUMAB [Suspect]
     Active Substance: DACLIZUMAB
     Route: 042
  88. MYCOPHENOLATE MOFETIL. [Suspect]
     Active Substance: MYCOPHENOLATE MOFETIL
     Route: 048
  89. NEORAL [Suspect]
     Active Substance: CYCLOSPORINE
     Indication: TRANSPLANT
     Route: 048
  90. NEORAL [Suspect]
     Active Substance: CYCLOSPORINE
     Route: 048
  91. MYCOPHENOLATE MOFETIL. [Suspect]
     Active Substance: MYCOPHENOLATE MOFETIL
     Route: 048
  92. ANTITHYMOCYTE IMMUNOGLOBULIN (RABBIT) [Suspect]
     Active Substance: LAPINE T-LYMPHOCYTE IMMUNE GLOBULIN
     Route: 065
  93. SULFASALAZINE. [Suspect]
     Active Substance: SULFASALAZINE
     Indication: RHEUMATOID ARTHRITIS
     Route: 065
  94. ENBREL [Suspect]
     Active Substance: ETANERCEPT
     Route: 058
  95. ENBREL [Suspect]
     Active Substance: ETANERCEPT
     Route: 058
  96. ENBREL [Suspect]
     Active Substance: ETANERCEPT
     Route: 058
  97. ENBREL [Suspect]
     Active Substance: ETANERCEPT
     Route: 048
  98. ENBREL [Suspect]
     Active Substance: ETANERCEPT
     Route: 065
  99. ENBREL [Suspect]
     Active Substance: ETANERCEPT
     Route: 065
  100. TACROLIMUS. [Suspect]
     Active Substance: TACROLIMUS
     Route: 048
  101. PROGRAF [Suspect]
     Active Substance: TACROLIMUS
     Route: 048
  102. PROGRAF [Suspect]
     Active Substance: TACROLIMUS
     Route: 048
  103. PROGRAF [Suspect]
     Active Substance: TACROLIMUS
     Route: 048
  104. PROGRAF [Suspect]
     Active Substance: TACROLIMUS
     Route: 048
  105. PROGRAF [Suspect]
     Active Substance: TACROLIMUS
     Route: 048
  106. PROGRAF [Suspect]
     Active Substance: TACROLIMUS
     Route: 065
  107. ENBREL [Suspect]
     Active Substance: ETANERCEPT
     Route: 058
  108. TACROLIMUS. [Suspect]
     Active Substance: TACROLIMUS
     Indication: TRANSPLANT
     Route: 048
  109. IMMUNOGLOBULIN ANTI-HUMAN-LYMPHOCYTIC [Suspect]
     Active Substance: THYMOCYTE IMMUNE GLOBULIN NOS
     Indication: TRANSPLANT
     Route: 065
  110. ANTILYMPHOCYTE IMMUNOGLOBULIN (HORSE) [Suspect]
     Active Substance: EQUINE THYMOCYTE IMMUNE GLOBULIN
     Route: 065
  111. ENBREL [Suspect]
     Active Substance: ETANERCEPT
     Indication: PRODUCT USED FOR UNKNOWN INDICATION
     Route: 048
  112. DACLIZUMAB [Suspect]
     Active Substance: DACLIZUMAB
     Route: 065
  113. TEMAZEPAM. [Suspect]
     Active Substance: TEMAZEPAM
     Indication: PRODUCT USED FOR UNKNOWN INDICATION
     Route: 042
  114. PROGRAF [Suspect]
     Active Substance: TACROLIMUS
     Indication: PRODUCT USED FOR UNKNOWN INDICATION
     Route: 065
  115. PROGRAF [Suspect]
     Active Substance: TACROLIMUS
     Route: 065
  116. PROGRAF [Suspect]
     Active Substance: TACROLIMUS
     Route: 048
  117. PROGRAF [Suspect]
     Active Substance: TACROLIMUS
     Route: 048
  118. MYCOPHENOLATE MOFETIL. [Suspect]
     Active Substance: MYCOPHENOLATE MOFETIL
     Route: 048
  119. NEORAL [Suspect]
     Active Substance: CYCLOSPORINE
     Route: 065
  120. ARAVA [Suspect]
     Active Substance: LEFLUNOMIDE
     Indication: PRODUCT USED FOR UNKNOWN INDICATION
     Route: 065
  121. TOCILIZUMAB. [Suspect]
     Active Substance: TOCILIZUMAB
  122. CELLCEPT [Suspect]
     Active Substance: MYCOPHENOLATE MOFETIL\MYCOPHENOLATE MOFETIL HYDROCHLORIDE
     Indication: TRANSPLANT
     Route: 048
  123. CELLCEPT [Suspect]
     Active Substance: MYCOPHENOLATE MOFETIL\MYCOPHENOLATE MOFETIL HYDROCHLORIDE
     Route: 048
  124. CELLCEPT [Suspect]
     Active Substance: MYCOPHENOLATE MOFETIL\MYCOPHENOLATE MOFETIL HYDROCHLORIDE
     Route: 048
  125. CELLCEPT [Suspect]
     Active Substance: MYCOPHENOLATE MOFETIL\MYCOPHENOLATE MOFETIL HYDROCHLORIDE
     Route: 048
  126. RAPAMUNE [Suspect]
     Active Substance: SIROLIMUS
     Indication: TRANSPLANT
     Route: 042
  127. CELLCEPT [Suspect]
     Active Substance: MYCOPHENOLATE MOFETIL\MYCOPHENOLATE MOFETIL HYDROCHLORIDE
     Route: 048
  128. ENBREL [Suspect]
     Active Substance: ETANERCEPT
     Route: 058
  129. ANTITHYMOCYTE IMMUNOGLOBULIN (RABBIT) [Suspect]
     Active Substance: LAPINE T-LYMPHOCYTE IMMUNE GLOBULIN
     Route: 005
  130. TACROLIMUS. [Suspect]
     Active Substance: TACROLIMUS
     Route: 048
  131. TACROLIMUS. [Suspect]
     Active Substance: TACROLIMUS
     Route: 048
  132. PROGRAF [Suspect]
     Active Substance: TACROLIMUS
     Route: 048
  133. PROGRAF [Suspect]
     Active Substance: TACROLIMUS
     Route: 048
  134. PROGRAF [Suspect]
     Active Substance: TACROLIMUS
     Route: 048
  135. PROGRAF [Suspect]
     Active Substance: TACROLIMUS
     Route: 048
  136. PROGRAF [Suspect]
     Active Substance: TACROLIMUS
     Route: 048
  137. PROGRAF [Suspect]
     Active Substance: TACROLIMUS
     Route: 048
  138. ENBREL [Suspect]
     Active Substance: ETANERCEPT
     Indication: PRODUCT USED FOR UNKNOWN INDICATION
     Route: 058
  139. ENBREL [Suspect]
     Active Substance: ETANERCEPT
     Route: 058
  140. ENBREL [Suspect]
     Active Substance: ETANERCEPT
     Route: 058
  141. ANTITHYMOCYTE IMMUNOGLOBULIN (HORSE) [Suspect]
     Active Substance: EQUINE THYMOCYTE IMMUNE GLOBULIN
     Indication: TRANSPLANT
     Route: 005
  142. ANTILYMPHOCYTE IMMUNOGLOBULIN (HORSE) [Suspect]
     Active Substance: EQUINE THYMOCYTE IMMUNE GLOBULIN
     Route: 065
  143. GLICLAZIDE [Suspect]
     Active Substance: GLICLAZIDE
     Indication: PRODUCT USED FOR UNKNOWN INDICATION
     Route: 065
  144. ESBRIET [Suspect]
     Active Substance: PIRFENIDONE
     Indication: TRANSPLANT
     Route: 065
  145. PROGRAF [Suspect]
     Active Substance: TACROLIMUS
     Route: 065
  146. CELLCEPT [Suspect]
     Active Substance: MYCOPHENOLATE MOFETIL\MYCOPHENOLATE MOFETIL HYDROCHLORIDE
     Indication: PRODUCT USED FOR UNKNOWN INDICATION
     Route: 065
  147. MYCOPHENOLATE MOFETIL. [Suspect]
     Active Substance: MYCOPHENOLATE MOFETIL
     Route: 065
  148. MYCOPHENOLATE MOFETIL. [Suspect]
     Active Substance: MYCOPHENOLATE MOFETIL
     Route: 048
  149. MYCOPHENOLATE MOFETIL. [Suspect]
     Active Substance: MYCOPHENOLATE MOFETIL
     Route: 048
  150. ANTITHYMOCYTE IMMUNOGLOBULIN (RABBIT) [Suspect]
     Active Substance: LAPINE T-LYMPHOCYTE IMMUNE GLOBULIN
     Indication: TRANSPLANT
     Route: 065
  151. CELLCEPT [Suspect]
     Active Substance: MYCOPHENOLATE MOFETIL\MYCOPHENOLATE MOFETIL HYDROCHLORIDE
     Route: 048
  152. CELLCEPT [Suspect]
     Active Substance: MYCOPHENOLATE MOFETIL\MYCOPHENOLATE MOFETIL HYDROCHLORIDE
     Route: 048
  153. CELLCEPT [Suspect]
     Active Substance: MYCOPHENOLATE MOFETIL\MYCOPHENOLATE MOFETIL HYDROCHLORIDE
     Route: 048
  154. CELLCEPT [Suspect]
     Active Substance: MYCOPHENOLATE MOFETIL\MYCOPHENOLATE MOFETIL HYDROCHLORIDE
     Route: 048
  155. ENBREL [Suspect]
     Active Substance: ETANERCEPT
     Route: 058
  156. ENBREL [Suspect]
     Active Substance: ETANERCEPT
     Route: 058
  157. ENBREL [Suspect]
     Active Substance: ETANERCEPT
     Route: 058
  158. ENBREL [Suspect]
     Active Substance: ETANERCEPT
     Route: 058
  159. ENBREL [Suspect]
     Active Substance: ETANERCEPT
     Route: 058
  160. ENBREL [Suspect]
     Active Substance: ETANERCEPT
     Route: 048
  161. ENBREL [Suspect]
     Active Substance: ETANERCEPT
     Route: 065
  162. TACROLIMUS. [Suspect]
     Active Substance: TACROLIMUS
     Route: 048
  163. PROGRAF [Suspect]
     Active Substance: TACROLIMUS
     Route: 048
  164. PROGRAF [Suspect]
     Active Substance: TACROLIMUS
     Route: 048
  165. PROGRAF [Suspect]
     Active Substance: TACROLIMUS
     Route: 048
  166. PROGRAF [Suspect]
     Active Substance: TACROLIMUS
     Route: 048
  167. PROGRAF [Suspect]
     Active Substance: TACROLIMUS
     Route: 048
  168. PROGRAF [Suspect]
     Active Substance: TACROLIMUS
     Route: 048
  169. PROGRAF [Suspect]
     Active Substance: TACROLIMUS
     Route: 048
  170. ZENAPAX [Suspect]
     Active Substance: DACLIZUMAB
     Indication: PRODUCT USED FOR UNKNOWN INDICATION
     Dosage: 5 MG/ML
     Route: 042
  171. ENBREL [Suspect]
     Active Substance: ETANERCEPT
     Route: 058
  172. ENBREL [Suspect]
     Active Substance: ETANERCEPT
     Route: 058
  173. ANTILYMPHOCYTE IMMUNOGLOBULIN (HORSE) [Suspect]
     Active Substance: EQUINE THYMOCYTE IMMUNE GLOBULIN
     Indication: TRANSPLANT REJECTION
     Route: 065
  174. ANTITHYMOCYTE IMMUNOGLOBULIN [Suspect]
     Active Substance: THYMOCYTE IMMUNE GLOBULIN NOS
     Route: 065
  175. ANTITHYMOCYTE IMMUNOGLOBULIN [Suspect]
     Active Substance: THYMOCYTE IMMUNE GLOBULIN NOS
     Route: 065
  176. MYCOPHENOLATE [Suspect]
     Active Substance: MYCOPHENOLIC ACID
     Route: 065
  177. ENBREL [Suspect]
     Active Substance: ETANERCEPT
     Route: 048
  178. ANTITHYMOCYTE IMMUNOGLOBULIN (RABBIT) [Suspect]
     Active Substance: LAPINE T-LYMPHOCYTE IMMUNE GLOBULIN
     Indication: TRANSPLANT
     Route: 058
  179. PROGRAF [Suspect]
     Active Substance: TACROLIMUS
     Route: 048
  180. MYCOPHENOLATE MOFETIL. [Suspect]
     Active Substance: MYCOPHENOLATE MOFETIL
     Route: 065
  181. MYCOPHENOLATE MOFETIL. [Suspect]
     Active Substance: MYCOPHENOLATE MOFETIL
     Route: 048
  182. MYCOPHENOLATE MOFETIL. [Suspect]
     Active Substance: MYCOPHENOLATE MOFETIL
     Route: 048
  183. INFLIXIMAB [Suspect]
     Active Substance: INFLIXIMAB
     Indication: PRODUCT USED FOR UNKNOWN INDICATION
     Route: 042
  184. GLICLAZIDE [Suspect]
     Active Substance: GLICLAZIDE
     Indication: PRODUCT USED FOR UNKNOWN INDICATION
     Route: 042
  185. REMICADE [Suspect]
     Active Substance: INFLIXIMAB
     Indication: TRANSPLANT
     Route: 042
  186. NEORAL [Suspect]
     Active Substance: CYCLOSPORINE
     Route: 065
  187. CELLCEPT [Suspect]
     Active Substance: MYCOPHENOLATE MOFETIL\MYCOPHENOLATE MOFETIL HYDROCHLORIDE
     Route: 048
  188. ENBREL [Suspect]
     Active Substance: ETANERCEPT
     Route: 058
  189. ENBREL [Suspect]
     Active Substance: ETANERCEPT
     Route: 058
  190. ANTITHYMOCYTE IMMUNOGLOBULIN (RABBIT) [Suspect]
     Active Substance: LAPINE T-LYMPHOCYTE IMMUNE GLOBULIN
     Route: 005
  191. TACROLIMUS. [Suspect]
     Active Substance: TACROLIMUS
     Route: 048
  192. TACROLIMUS. [Suspect]
     Active Substance: TACROLIMUS
     Route: 048
  193. PROGRAF [Suspect]
     Active Substance: TACROLIMUS
     Route: 048
  194. PROGRAF [Suspect]
     Active Substance: TACROLIMUS
     Route: 048
  195. PROGRAF [Suspect]
     Active Substance: TACROLIMUS
     Route: 048
  196. PROGRAF [Suspect]
     Active Substance: TACROLIMUS
     Route: 048
  197. PROGRAF [Suspect]
     Active Substance: TACROLIMUS
     Route: 065
  198. PROGRAF [Suspect]
     Active Substance: TACROLIMUS
     Route: 048
  199. PROGRAF [Suspect]
     Active Substance: TACROLIMUS
     Route: 048
  200. PROGRAF [Suspect]
     Active Substance: TACROLIMUS
     Route: 048
  201. ENBREL [Suspect]
     Active Substance: ETANERCEPT
     Route: 058
  202. ANTITHYMOCYTE IMMUNOGLOBULIN (HORSE) [Suspect]
     Active Substance: EQUINE THYMOCYTE IMMUNE GLOBULIN
     Route: 005
  203. ANTITHYMOCYTE IMMUNOGLOBULIN [Suspect]
     Active Substance: THYMOCYTE IMMUNE GLOBULIN NOS
     Indication: TRANSPLANT
     Route: 065
  204. MYCOPHENOLATE [Suspect]
     Active Substance: MYCOPHENOLIC ACID
     Route: 048
  205. ENBREL [Suspect]
     Active Substance: ETANERCEPT
     Route: 048
  206. CICLOSPORIN [Suspect]
     Active Substance: CYCLOSPORINE
     Indication: TRANSPLANT
     Route: 065
  207. MYCOPHENOLATE MOFETIL. [Suspect]
     Active Substance: MYCOPHENOLATE MOFETIL
     Route: 048
  208. DACLIZUMAB [Suspect]
     Active Substance: DACLIZUMAB
     Indication: PRODUCT USED FOR UNKNOWN INDICATION
     Route: 042
  209. NEORAL [Suspect]
     Active Substance: CYCLOSPORINE
     Route: 048
  210. MYCOPHENOLATE MOFETIL. [Suspect]
     Active Substance: MYCOPHENOLATE MOFETIL
     Route: 048
  211. HUMIRA [Suspect]
     Active Substance: ADALIMUMAB
     Indication: PRODUCT USED FOR UNKNOWN INDICATION
     Route: 058
  212. CELLCEPT [Suspect]
     Active Substance: MYCOPHENOLATE MOFETIL\MYCOPHENOLATE MOFETIL HYDROCHLORIDE
     Indication: TRANSPLANT
     Route: 048
  213. ENBREL [Suspect]
     Active Substance: ETANERCEPT
     Route: 058
  214. ENBREL [Suspect]
     Active Substance: ETANERCEPT
     Route: 058
  215. ENBREL [Suspect]
     Active Substance: ETANERCEPT
     Route: 048
  216. ENBREL [Suspect]
     Active Substance: ETANERCEPT
     Route: 065
  217. DACLIZUMAB [Suspect]
     Active Substance: DACLIZUMAB
     Route: 042
  218. PROGRAF [Suspect]
     Active Substance: TACROLIMUS
     Route: 048
  219. PROGRAF [Suspect]
     Active Substance: TACROLIMUS
     Route: 048
  220. PROGRAF [Suspect]
     Active Substance: TACROLIMUS
     Route: 048
  221. PROGRAF [Suspect]
     Active Substance: TACROLIMUS
     Route: 048
  222. PROGRAF [Suspect]
     Active Substance: TACROLIMUS
     Route: 048
  223. PROGRAF [Suspect]
     Active Substance: TACROLIMUS
     Route: 048
  224. PROGRAF [Suspect]
     Active Substance: TACROLIMUS
     Route: 048
  225. PROGRAF [Suspect]
     Active Substance: TACROLIMUS
     Route: 048
  226. PROGRAF [Suspect]
     Active Substance: TACROLIMUS
     Route: 048
  227. PROGRAF [Suspect]
     Active Substance: TACROLIMUS
     Route: 048
  228. TACROLIMUS. [Suspect]
     Active Substance: TACROLIMUS
     Route: 065
  229. TACROLIMUS. [Suspect]
     Active Substance: TACROLIMUS
     Route: 065
  230. TACROLIMUS. [Suspect]
     Active Substance: TACROLIMUS
     Route: 065
  231. TACROLIMUS. [Suspect]
     Active Substance: TACROLIMUS
     Route: 065
  232. IMMUNOGLOBULIN ANTI-HUMAN-LYMPHOCYTIC [Suspect]
     Active Substance: THYMOCYTE IMMUNE GLOBULIN NOS
     Route: 065
  233. IMMUNOGLOBULIN ANTI-HUMAN-LYMPHOCYTIC [Suspect]
     Active Substance: THYMOCYTE IMMUNE GLOBULIN NOS
     Route: 065
  234. IMMUNOGLOBULIN ANTI-HUMAN-LYMPHOCYTIC [Suspect]
     Active Substance: THYMOCYTE IMMUNE GLOBULIN NOS
     Route: 065
  235. MYCOPHENOLATE [Suspect]
     Active Substance: MYCOPHENOLIC ACID
     Route: 048
  236. ENBREL [Suspect]
     Active Substance: ETANERCEPT
     Route: 048
  237. DACLIZUMAB [Suspect]
     Active Substance: DACLIZUMAB
     Indication: TRANSPLANT
     Route: 042
  238. ESBRIET [Suspect]
     Active Substance: PIRFENIDONE
     Route: 065
  239. MYCOPHENOLATE MOFETIL. [Suspect]
     Active Substance: MYCOPHENOLATE MOFETIL
     Route: 065
  240. THYMOGLOBULIN [Suspect]
     Active Substance: LAPINE T-LYMPHOCYTE IMMUNE GLOBULIN
     Indication: TRANSPLANT
     Route: 042
  241. ANTITHYMOCYTE IMMUNOGLOBULIN (RABBIT) [Suspect]
     Active Substance: LAPINE T-LYMPHOCYTE IMMUNE GLOBULIN
     Route: 065

REACTIONS (18)
  - Rheumatoid arthritis [Not Recovered/Not Resolved]
  - Drug ineffective [Not Recovered/Not Resolved]
  - Incorrect route of product administration [Not Recovered/Not Resolved]
  - Sleep disorder due to general medical condition, insomnia type [Not Recovered/Not Resolved]
  - Pneumonia [Not Recovered/Not Resolved]
  - Overdose [Not Recovered/Not Resolved]
  - Off label use [Unknown]
  - Product use in unapproved indication [Unknown]
  - Transplant dysfunction [Not Recovered/Not Resolved]
  - Transplant rejection [Not Recovered/Not Resolved]
  - Condition aggravated [Not Recovered/Not Resolved]
  - Loss of personal independence in daily activities [Not Recovered/Not Resolved]
  - Liver function test abnormal [Not Recovered/Not Resolved]
  - Product use issue [Not Recovered/Not Resolved]
  - Pain [Not Recovered/Not Resolved]
  - Acne [Not Recovered/Not Resolved]
  - Alopecia [Not Recovered/Not Resolved]
  - Ovarian cyst [Not Recovered/Not Resolved]
